FAERS Safety Report 8815504 (Version 2)
Quarter: 2012Q4

REPORT INFORMATION
  Report Type: Report from Study
  Country: DE (occurrence: DE)
  Receive Date: 20120928
  Receipt Date: 20121015
  Transmission Date: 20130627
  Serious: Yes (Hospitalization)
  Sender: FDA-Public Use
  Company Number: DE-JNJFOC-20120909201

PATIENT
  Age: 53 Year
  Sex: Female

DRUGS (8)
  1. SIMPONI [Suspect]
     Indication: RHEUMATOID ARTHRITIS
     Route: 058
     Dates: start: 201107
  2. PREDNISOLON [Concomitant]
  3. TARGIN [Concomitant]
  4. RAMIPRIL [Concomitant]
  5. CALCIUM AND VITAMIN D3 [Concomitant]
  6. PANTOZOL [Concomitant]
  7. ELONTRIL [Concomitant]
  8. VALDOXAN (AGOMELATINE) [Concomitant]

REACTIONS (2)
  - Rheumatoid arthritis [Recovered/Resolved]
  - Drug ineffective [Recovered/Resolved]
